FAERS Safety Report 11010814 (Version 1)
Quarter: 2015Q2

REPORT INFORMATION
  Report Type: Report from Study
  Country: US (occurrence: US)
  Receive Date: 20150410
  Receipt Date: 20150410
  Transmission Date: 20150821
  Serious: Yes (Hospitalization)
  Sender: FDA-Public Use
  Company Number: US-INTERMUNE, INC.-201503IM012919

PATIENT
  Age: 70 Year
  Sex: Male

DRUGS (16)
  1. LISINOPRIL. [Concomitant]
     Active Substance: LISINOPRIL
  2. NOVOLOG [Concomitant]
     Active Substance: INSULIN ASPART
  3. ESBRIET [Suspect]
     Active Substance: PIRFENIDONE
     Dosage: 2403 MG
     Route: 048
     Dates: start: 2015, end: 2015
  4. MULTIVITAMIN [Concomitant]
     Active Substance: VITAMINS
  5. ESBRIET [Suspect]
     Active Substance: PIRFENIDONE
     Indication: IDIOPATHIC PULMONARY FIBROSIS
     Route: 048
     Dates: start: 20150226
  6. ADVAIR HFA [Concomitant]
     Active Substance: FLUTICASONE PROPIONATE\SALMETEROL XINAFOATE
  7. PREDNISONE. [Concomitant]
     Active Substance: PREDNISONE
  8. LOSARTAN/HCTZ [Concomitant]
     Active Substance: HYDROCHLOROTHIAZIDE\LOSARTAN
  9. CLOPIDOGREL [Concomitant]
     Active Substance: CLOPIDOGREL BISULFATE
  10. LANTUS [Concomitant]
     Active Substance: INSULIN GLARGINE
  11. LEVAQUIN [Concomitant]
     Active Substance: LEVOFLOXACIN
  12. ASPIRIN. [Concomitant]
     Active Substance: ASPIRIN
  13. METOPROLOL [Concomitant]
     Active Substance: METOPROLOL
  14. ATORVASTATIN [Concomitant]
     Active Substance: ATORVASTATIN
  15. RANITIDINE [Concomitant]
     Active Substance: RANITIDINE\RANITIDINE HYDROCHLORIDE
  16. OMEGA 3 [Concomitant]
     Active Substance: OMEGA-3 FATTY ACIDS

REACTIONS (2)
  - Abdominal pain upper [Unknown]
  - Abdominal symptom [Unknown]

NARRATIVE: CASE EVENT DATE: 20150328
